FAERS Safety Report 19816295 (Version 3)
Quarter: 2021Q4

REPORT INFORMATION
  Report Type: Spontaneous
  Country: US (occurrence: US)
  Receive Date: 20210909
  Receipt Date: 20211121
  Transmission Date: 20220303
  Serious: Yes (Hospitalization, Other)
  Sender: FDA-Public Use
  Company Number: US-009507513-2109USA002224

PATIENT
  Sex: Female
  Weight: 99.773 kg

DRUGS (3)
  1. JANUVIA [Suspect]
     Active Substance: SITAGLIPTIN PHOSPHATE
     Indication: Type 2 diabetes mellitus
     Dosage: 100 MILLIGRAM (1 TABLET), QD
     Route: 048
     Dates: start: 20210413
  2. IBUPROFEN [Concomitant]
     Active Substance: IBUPROFEN
     Dosage: 200 MILLIGRAM, PRN
     Route: 048
     Dates: start: 20210413
  3. LANTUS [Concomitant]
     Active Substance: INSULIN GLARGINE
     Dosage: 5 U, QPM, STRENGTH: 10 U/ML
     Route: 058
     Dates: start: 20210512

REACTIONS (2)
  - Nephrolithiasis [Recovered/Resolved]
  - Urinary tract infection [Recovered/Resolved]

NARRATIVE: CASE EVENT DATE: 20210101
